FAERS Safety Report 8060972-3 (Version None)
Quarter: 2012Q1

REPORT INFORMATION
  Report Type: 
  Country: None (occurrence: None)
  Receive Date: 20120120
  Receipt Date: 20120112
  Transmission Date: 20120608
  Serious: Yes (Hospitalization, Disabling, Other)
  Sender: FDA-Public Use
  Company Number: US-MERCK-1106USA03366

PATIENT
  Age: 68 Year
  Sex: Female
  Weight: 74 kg

DRUGS (5)
  1. FOSAMAX [Suspect]
     Indication: OSTEOPENIA
     Route: 048
     Dates: start: 20010101, end: 20080201
  2. BONIVA [Suspect]
     Indication: OSTEOPENIA
     Route: 048
     Dates: start: 20080201, end: 20080401
  3. CALCIUM (UNSPECIFIED) AND VITAMIN D (UNSPECIFIED) [Concomitant]
     Route: 065
     Dates: start: 20040101
  4. VITAMINS (UNSPECIFIED) [Concomitant]
     Route: 065
     Dates: start: 20040101
  5. VITAMIN D (UNSPECIFIED) [Concomitant]
     Indication: OSTEOPENIA
     Route: 065
     Dates: start: 20040101

REACTIONS (20)
  - HYPERLIPIDAEMIA [None]
  - LIGAMENT SPRAIN [None]
  - GASTROOESOPHAGEAL REFLUX DISEASE [None]
  - JOINT EFFUSION [None]
  - CHONDROMALACIA [None]
  - DYSLIPIDAEMIA [None]
  - FEMUR FRACTURE [None]
  - FALL [None]
  - HYPERTENSION [None]
  - TOOTH DISORDER [None]
  - ARTHRALGIA [None]
  - SYNOVIAL CYST [None]
  - VITAMIN D DEFICIENCY [None]
  - OSTEOARTHRITIS [None]
  - LOW TURNOVER OSTEOPATHY [None]
  - FOOT FRACTURE [None]
  - HAND FRACTURE [None]
  - OSTEONECROSIS [None]
  - MENISCAL DEGENERATION [None]
  - BLOOD CHOLESTEROL INCREASED [None]
